FAERS Safety Report 13748996 (Version 1)
Quarter: 2017Q3

REPORT INFORMATION
  Report Type: Spontaneous
  Country: US (occurrence: US)
  Receive Date: 20170712
  Receipt Date: 20170712
  Transmission Date: 20171127
  Serious: Yes (Death)
  Sender: FDA-Public Use
  Company Number: None

PATIENT
  Age: 48 Year
  Sex: Male
  Weight: 98.23 kg

DRUGS (11)
  1. FUROSEMIDE. [Concomitant]
     Active Substance: FUROSEMIDE
  2. NOREPINEPHRINE. [Concomitant]
     Active Substance: NOREPINEPHRINE
  3. NEULASTA [Suspect]
     Active Substance: PEGFILGRASTIM
     Indication: HEPATITIS ALCOHOLIC
     Dosage: OTHER DOSE:MG;OTHER FREQUENCY:1 DOSE/WK FOR 2 WK;?
     Route: 058
     Dates: start: 20170615, end: 20170622
  4. ZOSYN [Concomitant]
     Active Substance: PIPERACILLIN SODIUM\TAZOBACTAM SODIUM
  5. SOLU-MEDROL [Concomitant]
     Active Substance: METHYLPREDNISOLONE SODIUM SUCCINATE
  6. PROPOFOL. [Concomitant]
     Active Substance: PROPOFOL
  7. VANCOMYCIN [Concomitant]
     Active Substance: VANCOMYCIN
  8. SPIRONOLACTONE. [Concomitant]
     Active Substance: SPIRONOLACTONE
  9. PREDNISOLONE. [Suspect]
     Active Substance: PREDNISOLONE
     Indication: HEPATITIS ALCOHOLIC
     Dosage: ?          OTHER DOSE:MG;?
     Route: 048
     Dates: start: 20170615, end: 20170627
  10. OCTREOTIDE. [Concomitant]
     Active Substance: OCTREOTIDE
  11. ALBUMIN [Concomitant]
     Active Substance: ALBUMIN HUMAN

REACTIONS (8)
  - Hypotension [None]
  - Renal failure [None]
  - Dialysis [None]
  - Coagulopathy [None]
  - Loss of consciousness [None]
  - Discoloured vomit [None]
  - Urinary incontinence [None]
  - Pyrexia [None]

NARRATIVE: CASE EVENT DATE: 20170628
